FAERS Safety Report 23677810 (Version 1)
Quarter: 2024Q1

REPORT INFORMATION
  Report Type: Spontaneous
  Country: US (occurrence: None)
  Receive Date: 20240326
  Receipt Date: 20240326
  Transmission Date: 20240410
  Serious: Yes (Other)
  Sender: FDA-Public Use
  Company Number: None

PATIENT
  Sex: Female

DRUGS (6)
  1. SPRAVATO [Suspect]
     Active Substance: ESKETAMINE
     Indication: Major depression
     Dosage: FREQ: RX1: ADMINISTER 56 MG INTRANASALLY FOR ONE DOSE??
     Route: 045
  2. BUSPIRONE [Concomitant]
  3. LITHIUM CARBONATE [Concomitant]
     Active Substance: LITHIUM CARBONATE
  4. MELATONIN [Concomitant]
  5. TRAZODONE [Concomitant]
     Active Substance: TRAZODONE HYDROCHLORIDE
  6. TRINTELLIX [Concomitant]
     Active Substance: VORTIOXETINE HYDROBROMIDE

REACTIONS (1)
  - Suicidal ideation [None]
